FAERS Safety Report 13068754 (Version 3)
Quarter: 2017Q1

REPORT INFORMATION
  Report Type: Report from Study
  Country: TW (occurrence: TW)
  Receive Date: 20161228
  Receipt Date: 20170110
  Transmission Date: 20170428
  Serious: No
  Sender: FDA-Public Use
  Company Number: TW-JNJFOC-20161222840

PATIENT
  Age: 25 Year
  Sex: Female
  Weight: 45 kg

DRUGS (8)
  1. STELARA [Suspect]
     Active Substance: USTEKINUMAB
     Indication: PSORIASIS
     Route: 058
     Dates: start: 20161222
  2. XAMIOL [Concomitant]
     Active Substance: BETAMETHASONE DIPROPIONATE\CALCIPOTRIENE HYDRATE
     Indication: PSORIASIS
     Dosage: 30G/BOT
     Route: 061
     Dates: start: 20161222
  3. APO-TRAMADOL/ACET [Concomitant]
     Active Substance: ACETAMINOPHEN\TRAMADOL HYDROCHLORIDE
     Indication: RHEUMATOID ARTHRITIS
     Dosage: 37.5/ 325MG TAB AND DOSE (1 UNPSECIFIED UNIT)
     Route: 048
     Dates: start: 20161209
  4. ARCOXIA [Concomitant]
     Active Substance: ETORICOXIB
     Indication: RHEUMATOID ARTHRITIS
     Dosage: 60MG/TAB DOSE (1 UNSPECIFIED UNIT)
     Route: 048
     Dates: start: 20161209
  5. METHOTREXATE. [Concomitant]
     Active Substance: METHOTREXATE
     Indication: RHEUMATOID ARTHRITIS
     Dosage: DOSE (6 UNSPECIFIED UNIT) 2.5MG/TAB
     Route: 048
     Dates: start: 20161209
  6. FOLIC ACID. [Concomitant]
     Active Substance: FOLIC ACID
     Indication: RHEUMATOID ARTHRITIS
     Dosage: 5MG/TAB DOSE(1 UNSPECIFIED UNIT)
     Route: 048
     Dates: start: 20161209
  7. ARHEUMA [Concomitant]
     Indication: RHEUMATOID ARTHRITIS
     Dosage: 10MG/TAB AND DOSE (1 UNSPECIFIED UNIT)
     Route: 048
     Dates: start: 20161209
  8. SALAZINE [Concomitant]
     Active Substance: SULFASALAZINE
     Indication: PAIN
     Dosage: 0.5GM/TAB DOSE (2 UNSPECIFIED UNITS)
     Route: 048
     Dates: start: 20161209

REACTIONS (2)
  - Paraesthesia [Recovered/Resolved]
  - Rash [Recovered/Resolved]

NARRATIVE: CASE EVENT DATE: 20161223
